FAERS Safety Report 7157051-6 (Version None)
Quarter: 2010Q4

REPORT INFORMATION
  Report Type: 
  Country: None (occurrence: None)
  Receive Date: 20101214
  Receipt Date: 20091123
  Transmission Date: 20110411
  Serious: No
  Sender: FDA-Public Use
  Company Number: US-ASTRAZENECA-2009UW19504

PATIENT
  Age: 65 Year
  Sex: Female
  Weight: 66.7 kg

DRUGS (6)
  1. CRESTOR [Suspect]
     Route: 048
     Dates: start: 20090703, end: 20090704
  2. CRESTOR [Suspect]
     Route: 048
     Dates: start: 20090705
  3. ALTACE [Concomitant]
  4. TRIAMTERENE AND HYDROCHLOROTHIAZIDE [Concomitant]
  5. CELEBREX [Concomitant]
  6. OTC ALLERGY RELIEF [Concomitant]

REACTIONS (3)
  - ABASIA [None]
  - ASTHENIA [None]
  - VERTIGO [None]
